FAERS Safety Report 4462782-2 (Version None)
Quarter: 2004Q3

REPORT INFORMATION
  Report Type: 
  Country: None (occurrence: None)
  Receive Date: 20040927
  Receipt Date: 20040923
  Transmission Date: 20050211
  Serious: Yes (Hospitalization)
  Sender: FDA-Public Use
  Company Number: US-SHR-03-001551

PATIENT
  Age: 36 Year
  Sex: Female
  Weight: 67.1 kg

DRUGS (1)
  1. YASMIN [Suspect]
     Indication: DYSMENORRHOEA
     Dosage: 1 TAB, 1X/DAY, ORAL
     Route: 048
     Dates: start: 20010815, end: 20020410

REACTIONS (2)
  - HEPATIC FAILURE [None]
  - HEPATITIS [None]
